FAERS Safety Report 14470324 (Version 1)
Quarter: 2018Q1

REPORT INFORMATION
  Report Type: Spontaneous
  Country: PL (occurrence: PL)
  Receive Date: 20180131
  Receipt Date: 20180131
  Transmission Date: 20180509
  Serious: Yes (Hospitalization)
  Sender: FDA-Public Use
  Company Number: PL-TELIGENT, INC-IGIL20180052

PATIENT
  Age: 21 Year
  Sex: Male

DRUGS (1)
  1. ZINACEF [Suspect]
     Active Substance: CEFUROXIME SODIUM
     Indication: PRODUCT USED FOR UNKNOWN INDICATION
     Route: 042
     Dates: start: 20180120

REACTIONS (13)
  - Oral disorder [Not Recovered/Not Resolved]
  - Anaphylactic shock [Unknown]
  - Splenomegaly [Unknown]
  - Blister [Unknown]
  - Pyrexia [Unknown]
  - Hepatomegaly [Unknown]
  - Oral discomfort [Not Recovered/Not Resolved]
  - Toxic epidermal necrolysis [Not Recovered/Not Resolved]
  - Dysphagia [Not Recovered/Not Resolved]
  - Asthenia [Not Recovered/Not Resolved]
  - Stevens-Johnson syndrome [Not Recovered/Not Resolved]
  - Mouth haemorrhage [Not Recovered/Not Resolved]
  - Feeding disorder [Not Recovered/Not Resolved]

NARRATIVE: CASE EVENT DATE: 201801
